FAERS Safety Report 7498546-5 (Version None)
Quarter: 2011Q2

REPORT INFORMATION
  Report Type: 
  Country: None (occurrence: None)
  Receive Date: 20110524
  Receipt Date: 20110214
  Transmission Date: 20111010
  Serious: Yes (Death, Other)
  Sender: FDA-Public Use
  Company Number: US-BAYER-200916414NA

PATIENT
  Age: 71 Year
  Sex: Male
  Weight: 68 kg

DRUGS (8)
  1. TRASYLOL [Suspect]
     Indication: MITRAL VALVE REPLACEMENT
     Dosage: 3 ML, ONCE, INITIAL TEST DOSE
     Route: 042
     Dates: start: 20060310, end: 20060310
  2. TRASYLOL [Suspect]
     Indication: CORONARY ARTERY BYPASS
     Dosage: LOADING DOSE OF 200ML
     Route: 042
     Dates: start: 20060310, end: 20060310
  3. ACETYLSALICYLIC ACID SRT [Concomitant]
     Dosage: 81MG DAILY
     Route: 048
  4. TRASYLOL [Suspect]
     Indication: COX-MAZE PROCEDURE
     Dosage: 50 ML/HR INFUSION
     Route: 042
     Dates: start: 20060310, end: 20060310
  5. DYNACIRC [Concomitant]
     Dosage: 10MG DAILY
     Route: 048
  6. ACCURETIC [Concomitant]
     Dosage: 20/2.5MG TWICE DAILY
     Route: 048
  7. HEPARIN [Concomitant]
     Dosage: 30,000U
     Route: 042
     Dates: start: 20060310, end: 20060310
  8. AMIODARONE HCL [Concomitant]
     Dosage: 0.5MG/MIN
     Dates: start: 20060310, end: 20060310

REACTIONS (5)
  - RENAL FAILURE [None]
  - PERIPHERAL VASCULAR DISORDER [None]
  - INJURY [None]
  - CARDIAC DISORDER [None]
  - THROMBOSIS [None]
